FAERS Safety Report 8010957-8 (Version None)
Quarter: 2011Q4

REPORT INFORMATION
  Report Type: 
  Country: None (occurrence: None)
  Receive Date: 20111228
  Receipt Date: 20111220
  Transmission Date: 20120403
  Serious: Yes (Hospitalization)
  Sender: FDA-Public Use
  Company Number: JP-PFIZER INC-2011310686

PATIENT

DRUGS (1)
  1. AZULFIDINE [Suspect]

REACTIONS (1)
  - PNEUMONIA BACTERIAL [None]
